FAERS Safety Report 12811225 (Version 2)
Quarter: 2017Q2

REPORT INFORMATION
  Report Type: Report from Study
  Country: US (occurrence: US)
  Receive Date: 20161005
  Receipt Date: 20170403
  Transmission Date: 20170830
  Serious: Yes (Hospitalization, Other)
  Sender: FDA-Public Use
  Company Number: US-SA-2016SA179907

PATIENT
  Age: 69 Year
  Sex: Female

DRUGS (1)
  1. CERDELGA [Suspect]
     Active Substance: ELIGLUSTAT
     Indication: GAUCHER^S DISEASE
     Dosage: 2 PILLS/DAY
     Route: 048
     Dates: start: 20150414, end: 20161110

REACTIONS (4)
  - Dyspnoea [Recovering/Resolving]
  - Pulmonary embolism [Recovering/Resolving]
  - Blood urine present [Recovering/Resolving]
  - Nephrolithiasis [Recovering/Resolving]
